FAERS Safety Report 25446472 (Version 1)
Quarter: 2025Q2

REPORT INFORMATION
  Report Type: Spontaneous
  Country: BE (occurrence: BE)
  Receive Date: 20250617
  Receipt Date: 20250617
  Transmission Date: 20250717
  Serious: Yes (Death, Other)
  Sender: AMGEN
  Company Number: BE-AMGEN-BELSP2025115731

PATIENT

DRUGS (2)
  1. XGEVA [Suspect]
     Active Substance: DENOSUMAB
     Indication: Metastases to bone
     Route: 065
  2. ENZALUTAMIDE [Concomitant]
     Active Substance: ENZALUTAMIDE

REACTIONS (19)
  - Hormone-refractory prostate cancer [Fatal]
  - Metastases to bone [Fatal]
  - Cardiovascular disorder [Fatal]
  - Neutropenia [Unknown]
  - Hypertension [Unknown]
  - Weight decreased [Unknown]
  - Weight increased [Unknown]
  - Hot flush [Unknown]
  - Fracture [Unknown]
  - Constipation [Unknown]
  - Fatigue [Unknown]
  - Decreased appetite [Unknown]
  - Nausea [Unknown]
  - Anaemia [Unknown]
  - Asthenia [Unknown]
  - Arthralgia [Unknown]
  - Back pain [Unknown]
  - Diarrhoea [Unknown]
  - Bone pain [Unknown]
